FAERS Safety Report 4947313-2 (Version None)
Quarter: 2006Q1

REPORT INFORMATION
  Report Type: 
  Country: None (occurrence: None)
  Receive Date: 20060314
  Receipt Date: 20060301
  Transmission Date: 20060701
  Serious: Yes (Hospitalization)
  Sender: FDA-Public Use
  Company Number: 2005026934

PATIENT
  Age: 77 Year
  Sex: Male
  Weight: 67 kg

DRUGS (10)
  1. SUTENT [Suspect]
     Indication: GASTROINTESTINAL STROMAL TUMOUR
     Dosage: 50 MG (50 MG, ONCE IN MORNING (AM)), ORAL
     Route: 048
     Dates: start: 20041206
  2. DURAGESIC-100 [Concomitant]
  3. WELLBUTRIN [Concomitant]
  4. XALATAN [Concomitant]
  5. LOMOTIL [Concomitant]
  6. NORCO [Concomitant]
  7. NEXIUM [Concomitant]
  8. WARFARIN SODIUM [Concomitant]
  9. COSOPT [Concomitant]
  10. ACETAMINOPHEN [Concomitant]

REACTIONS (7)
  - ANAL FISTULA [None]
  - ANAL HAEMORRHAGE [None]
  - HAEMATOCRIT DECREASED [None]
  - HAEMOGLOBIN DECREASED [None]
  - INTERNATIONAL NORMALISED RATIO INCREASED [None]
  - PROTHROMBIN TIME PROLONGED [None]
  - RED BLOOD CELL COUNT DECREASED [None]
